FAERS Safety Report 24098412 (Version 2)
Quarter: 2024Q3

REPORT INFORMATION
  Report Type: Spontaneous
  Country: AT (occurrence: AT)
  Receive Date: 20240716
  Receipt Date: 20240723
  Transmission Date: 20241016
  Serious: Yes (Other)
  Sender: PURDUE
  Company Number: AT-NAPPMUNDI-GBR-2024-0117535

PATIENT
  Age: 41 Year
  Sex: Male

DRUGS (3)
  1. MORPHINE SULFATE [Suspect]
     Active Substance: MORPHINE SULFATE
     Indication: Drug dependence
     Dosage: UNK
     Route: 065
  2. MORPHINE SULFATE [Suspect]
     Active Substance: MORPHINE SULFATE
     Dosage: 800 MILLIGRAM, DAILY
     Route: 065
  3. MORPHINE SULFATE [Suspect]
     Active Substance: MORPHINE SULFATE
     Dosage: INCREASED TO 1200 MILLIGRAM, DAILY WITHIN A YEAR
     Route: 065

REACTIONS (10)
  - Nightmare [Unknown]
  - Apathy [Unknown]
  - Food craving [Unknown]
  - Quality of life decreased [Unknown]
  - Sedation [Unknown]
  - Diarrhoea [Unknown]
  - Drug ineffective [Not Recovered/Not Resolved]
  - Therapy change [Unknown]
  - Withdrawal syndrome [Not Recovered/Not Resolved]
  - Product packaging quantity issue [Not Recovered/Not Resolved]

NARRATIVE: CASE EVENT DATE: 20230301
